FAERS Safety Report 13816940 (Version 1)
Quarter: 2017Q3

REPORT INFORMATION
  Report Type: Spontaneous
  Country: US (occurrence: US)
  Receive Date: 20170731
  Receipt Date: 20170731
  Transmission Date: 20171127
  Serious: No
  Sender: FDA-Public Use
  Company Number: US-JNJFOC-20170703931

PATIENT
  Age: 67 Year
  Sex: Female
  Weight: 54.43 kg

DRUGS (7)
  1. ZYRTEC [Suspect]
     Active Substance: CETIRIZINE HYDROCHLORIDE
     Indication: SEASONAL ALLERGY
     Dosage: ONLY AS NEEDED (MAYBE ONE PER WEEK OR SO), FOR SEVERAL YEARS
     Route: 048
  2. SIMVASTATIN. [Concomitant]
     Active Substance: SIMVASTATIN
     Indication: BLOOD CHOLESTEROL DECREASED
     Dosage: 3 TO 4 YEARS
     Route: 065
  3. ZYRTEC [Suspect]
     Active Substance: CETIRIZINE HYDROCHLORIDE
     Indication: SNEEZING
     Dosage: ONLY AS NEEDED (MAYBE ONE PER WEEK OR SO), FOR SEVERAL YEARS
     Route: 048
  4. ZYRTEC [Suspect]
     Active Substance: CETIRIZINE HYDROCHLORIDE
     Indication: MULTIPLE ALLERGIES
     Dosage: ONLY AS NEEDED (MAYBE ONE PER WEEK OR SO), FOR SEVERAL YEARS
     Route: 048
  5. CALCIUM+D3 [Concomitant]
     Indication: ROUTINE HEALTH MAINTENANCE
     Dosage: 600MG +  800IU FOR 2 TO 3 YEARS
     Route: 065
  6. ZYRTEC [Suspect]
     Active Substance: CETIRIZINE HYDROCHLORIDE
     Indication: RHINORRHOEA
     Dosage: ONLY AS NEEDED (MAYBE ONE PER WEEK OR SO), FOR SEVERAL YEARS
     Route: 048
  7. VITAMIN D3 [Concomitant]
     Active Substance: CHOLECALCIFEROL
     Indication: ROUTINE HEALTH MAINTENANCE
     Dosage: 2 TO 3 YEARS
     Route: 065

REACTIONS (3)
  - Feeling abnormal [Recovered/Resolved]
  - Somnolence [Recovered/Resolved]
  - Hypersomnia [Recovered/Resolved]

NARRATIVE: CASE EVENT DATE: 20170704
